FAERS Safety Report 9747958 (Version 2)
Quarter: 2013Q4

REPORT INFORMATION
  Report Type: Spontaneous
  Country: DE (occurrence: None)
  Receive Date: 20131206
  Receipt Date: 20131213
  Transmission Date: 20140711
  Serious: Yes (Hospitalization)
  Sender: FDA-Public Use
  Company Number: SYM-2013-13629

PATIENT
  Age: 65 Year
  Sex: Male

DRUGS (12)
  1. FLUOROURACIL [Suspect]
     Indication: COLORECTAL CANCER METASTATIC
     Route: 040
     Dates: start: 20130911, end: 20130911
  2. AFLIBERCEPT [Suspect]
     Indication: COLORECTAL CANCER METASTATIC
     Dates: start: 20130911, end: 20130911
  3. IRINOTECAN [Suspect]
     Indication: COLORECTAL CANCER METASTATIC
     Dates: start: 20130911, end: 20130911
  4. LEUCOVORIN (FOLINIC ACID) (SOLUTION FOR INFUSION) (FOLINIC ACID) [Suspect]
     Indication: COLORECTAL CANCER METASTATIC
     Dates: start: 20130911, end: 20130911
  5. ACE INHIBITOR NOS (ACE INHIBITORS) (NULL) [Concomitant]
  6. BETA BLOCKING AGENTS (BETA BLOCKING AGENTS) [Concomitant]
  7. CHOLESTEROL  AND TRIGLYCERIDE REDUCERS (SERUM LIPID REDUCING AGENTS) (NULL) [Concomitant]
  8. ANTISEPTICS (ANTISEPTICS) [Concomitant]
  9. CALCIUM CHANNEL BLOCKERS (CALCIUM CHANNEL BLOCKERS) [Concomitant]
  10. PREGABALIN (PREGABALIN) [Concomitant]
  11. G-CSF (GRANULOCYTE COLONY STIMULATING FACTOR (GRANULOCYTE COLONY STIMULATING FACTOR) [Concomitant]
  12. CORTICOSTEROIDS (CORTICOSTEROIDS) [Concomitant]

REACTIONS (1)
  - Neutropenia [None]
